FAERS Safety Report 8709333 (Version 2)
Quarter: 2012Q4

REPORT INFORMATION
  Report Type: Report from Study
  Country: DE (occurrence: DE)
  Receive Date: 20120806
  Receipt Date: 20121016
  Transmission Date: 20130627
  Serious: Yes (Death, Hospitalization, Other)
  Sender: FDA-Public Use
  Company Number: DE-CELGENEUS-062-21880-12053540

PATIENT
  Age: 78 Year
  Sex: Male
  Weight: 51.3 kg

DRUGS (9)
  1. REVLIMID [Suspect]
     Indication: MULTIPLE MYELOMA
     Dosage: 10 Milligram
     Route: 048
     Dates: start: 20091029
  2. REVLIMID [Suspect]
     Dosage: 10 Milligram
     Route: 048
     Dates: start: 20091127, end: 20110512
  3. ERYTHROCYTE [Concomitant]
     Indication: DRUG USE FOR UNKNOWN INDICATION
     Dosage: 2 concentrates
     Route: 065
     Dates: start: 20110415, end: 20110415
  4. DEXAMETHASONE [Concomitant]
     Indication: MULTIPLE MYELOMA
     Dosage: 20 Milligram
     Route: 048
     Dates: start: 20091029
  5. DEXAMETHASONE [Concomitant]
     Dosage: 20 Milligram
     Route: 048
     Dates: start: 20091127, end: 20110512
  6. PAMIDRONATE [Concomitant]
     Indication: DRUG USE FOR UNKNOWN INDICATION
     Dosage: .2 Milligram
     Route: 065
     Dates: start: 20090216, end: 20110510
  7. LMWH [Concomitant]
     Indication: ANTICOAGULANT THERAPY
     Route: 065
  8. ASPIRINE [Concomitant]
     Indication: ANTICOAGULANT THERAPY
     Route: 065
  9. PHENPROCOUMON [Concomitant]
     Indication: ANTICOAGULANT THERAPY
     Route: 065

REACTIONS (11)
  - Chronic myeloid leukaemia [Not Recovered/Not Resolved]
  - Subdural haematoma [Fatal]
  - Arrhythmia [Unknown]
  - Ischaemic cerebral infarction [Unknown]
  - Infection [Unknown]
  - Pneumonia [Unknown]
  - Infection [Unknown]
  - Herpes zoster [Unknown]
  - Diarrhoea [Unknown]
  - Anaemia [Unknown]
  - Plasma cell myeloma [Unknown]
